FAERS Safety Report 9383433 (Version 1)
Quarter: 2013Q3

REPORT INFORMATION
  Report Type: Spontaneous
  Country: NL (occurrence: NL)
  Receive Date: 20130704
  Receipt Date: 20130704
  Transmission Date: 20140515
  Serious: Yes (Death, Other)
  Sender: FDA-Public Use
  Company Number: NL-JNJFOC-20130700830

PATIENT
  Sex: 0

DRUGS (7)
  1. INFLIXIMAB, RECOMBINANT [Suspect]
     Indication: CROHN^S DISEASE
     Route: 042
  2. METHOTREXATE [Concomitant]
     Route: 065
  3. STEROIDS NOS [Concomitant]
     Route: 065
  4. 5-ASA [Concomitant]
     Route: 065
  5. AZATHIOPRINE [Concomitant]
     Route: 065
  6. 6 MERCAPTOPURINE [Concomitant]
     Route: 065
  7. 6 TG [Concomitant]
     Route: 065

REACTIONS (16)
  - Gastrointestinal carcinoma [Unknown]
  - Malignant respiratory tract neoplasm [Unknown]
  - Haematological malignancy [Unknown]
  - Colectomy [Unknown]
  - Infusion related reaction [Unknown]
  - Lupus-like syndrome [Unknown]
  - Type IV hypersensitivity reaction [Unknown]
  - Rash [Unknown]
  - Infection [Unknown]
  - Neurological symptom [Unknown]
  - Skin cancer [Unknown]
  - Dysplasia [Unknown]
  - Neoplasm malignant [Fatal]
  - Arthralgia [Unknown]
  - Drug ineffective [Unknown]
  - Malaise [Unknown]
